FAERS Safety Report 19593156 (Version 2)
Quarter: 2021Q3

REPORT INFORMATION
  Report Type: Spontaneous
  Country: GB (occurrence: GB)
  Receive Date: 20210722
  Receipt Date: 20210826
  Transmission Date: 20211014
  Serious: Yes (Hospitalization, Other)
  Sender: FDA-Public Use
  Company Number: GB-TEVA-2021-GB-1933804

PATIENT
  Age: 17 Year
  Sex: Female
  Weight: 55 kg

DRUGS (10)
  1. DOCETAXEL. [Suspect]
     Active Substance: DOCETAXEL
     Indication: SYNOVIAL SARCOMA
     Dosage: 121.5 MG, QCY; CYCLICAL
     Route: 042
     Dates: start: 20210428, end: 20210428
  2. GEMCITABINE HYDROCHLORIDE. [Suspect]
     Active Substance: GEMCITABINE HYDROCHLORIDE
     Dosage: 900 MG, QCY; CYCLICAL
     Route: 042
  3. RAMUCIRUMAB [Suspect]
     Active Substance: RAMUCIRUMAB
     Indication: SYNOVIAL SARCOMA
     Dosage: 493.2 MG, QCY; CYCLICAL
     Route: 042
  4. RAMUCIRUMAB [Suspect]
     Active Substance: RAMUCIRUMAB
     Dosage: 493.2 MG, QCY; CYCLICAL
     Route: 042
     Dates: start: 20210421, end: 20210421
  5. PARACETAMOL [Concomitant]
     Active Substance: ACETAMINOPHEN
     Indication: PROPHYLAXIS
     Route: 065
     Dates: start: 20210508
  6. PARACETAMOL [Concomitant]
     Active Substance: ACETAMINOPHEN
     Indication: PYREXIA
     Route: 065
     Dates: start: 20210428, end: 20210428
  7. GEMCITABINE HYDROCHLORIDE. [Suspect]
     Active Substance: GEMCITABINE HYDROCHLORIDE
     Indication: SYNOVIAL SARCOMA
     Dosage: 900 MG, QCY; CYCLICAL
     Route: 042
     Dates: start: 20210421, end: 20210421
  8. CHLORPHENAMINE [Concomitant]
     Active Substance: CHLORPHENIRAMINE MALEATE
     Route: 065
     Dates: start: 20210428, end: 20210428
  9. ONDANSETRON [Concomitant]
     Active Substance: ONDANSETRON
     Indication: PROPHYLAXIS
     Route: 065
     Dates: start: 20210428, end: 20210428
  10. DOCETAXEL. [Suspect]
     Active Substance: DOCETAXEL
     Dosage: 121.5 MG, QCY; CYCLICAL
     Route: 042

REACTIONS (5)
  - Pyrexia [Recovered/Resolved]
  - Cough [Unknown]
  - Chest pain [Unknown]
  - Haemoptysis [Recovered/Resolved]
  - Sepsis [Recovered/Resolved]

NARRATIVE: CASE EVENT DATE: 20210507
